FAERS Safety Report 4528863-X (Version None)
Quarter: 2004Q4

REPORT INFORMATION
  Report Type: 
  Country: None (occurrence: None)
  Receive Date: 20041216
  Receipt Date: 20041206
  Transmission Date: 20050328
  Serious: Yes (Hospitalization)
  Sender: FDA-Public Use
  Company Number: US-JNJFOC-20041201551

PATIENT
  Sex: Male

DRUGS (33)
  1. REMICADE [Suspect]
     Route: 042
  2. REMICADE [Suspect]
     Route: 042
  3. REMICADE [Suspect]
     Indication: RHEUMATOID ARTHRITIS
     Route: 042
  4. PREDNISONE [Concomitant]
  5. FOLIC ACID [Concomitant]
  6. METHOTREXATE [Concomitant]
  7. VIOXX [Concomitant]
  8. BEXTRA [Concomitant]
  9. MOBIC [Concomitant]
  10. DIPHENHYDRAMINE [Concomitant]
  11. FOSAMAX [Concomitant]
  12. FLOMAX [Concomitant]
  13. LACTULOSE [Concomitant]
     Indication: CONSTIPATION
  14. TRAZODONE HCL [Concomitant]
     Indication: INSOMNIA
     Dosage: AT BEDTIME
  15. PRAVACHOL [Concomitant]
     Dosage: AT BEDTIME
  16. ASPIRIN [Concomitant]
  17. NADOLOL [Concomitant]
  18. LISINOPRIL [Concomitant]
  19. COUMADIN [Concomitant]
  20. CALCIUM [Concomitant]
  21. FISH OIL [Concomitant]
  22. MULTI-VITAMIN [Concomitant]
  23. MULTI-VITAMIN [Concomitant]
  24. MULTI-VITAMIN [Concomitant]
  25. MULTI-VITAMIN [Concomitant]
  26. MULTI-VITAMIN [Concomitant]
  27. MULTI-VITAMIN [Concomitant]
  28. MULTI-VITAMIN [Concomitant]
  29. MULTI-VITAMIN [Concomitant]
  30. PENICILLIN [Concomitant]
  31. TRAMADOL HCL [Concomitant]
     Indication: PAIN
  32. FUROSEMIDE [Concomitant]
     Indication: PNEUMONIA
     Route: 042
  33. AZITHROMYCIN [Concomitant]
     Indication: PNEUMONIA
     Dosage: 6 DAYS
     Route: 049

REACTIONS (9)
  - DYSPNOEA [None]
  - FALL [None]
  - HILAR LYMPHADENOPATHY [None]
  - JOINT STIFFNESS [None]
  - PNEUMONIA [None]
  - RENAL ATROPHY [None]
  - RIB FRACTURE [None]
  - TOOTH ABSCESS [None]
  - WHEEZING [None]
